FAERS Safety Report 19801823 (Version 1)
Quarter: 2021Q3

REPORT INFORMATION
  Report Type: Spontaneous
  Country: US (occurrence: US)
  Receive Date: 20210901
  Receipt Date: 20210901
  Transmission Date: 20211014
  Serious: No
  Sender: FDA-Public Use
  Company Number: None

PATIENT
  Age: 12 Year
  Sex: Female
  Weight: 42.64 kg

DRUGS (1)
  1. VALACYCLOVIR 500 MG [Suspect]
     Active Substance: VALACYCLOVIR HYDROCHLORIDE
     Indication: HERPES SIMPLEX
     Route: 048
     Dates: start: 20210330, end: 20210830

REACTIONS (2)
  - Depression [None]
  - Anxiety [None]

NARRATIVE: CASE EVENT DATE: 20210503
